FAERS Safety Report 14925089 (Version 3)
Quarter: 2018Q2

REPORT INFORMATION
  Report Type: Spontaneous
  Country: JP (occurrence: JP)
  Receive Date: 20180522
  Receipt Date: 20180622
  Transmission Date: 20180711
  Serious: Yes (Other)
  Sender: FDA-Public Use
  Company Number: JP-BRISTOL-MYERS SQUIBB COMPANY-BMS-2018-046927

PATIENT
  Age: 59 Year
  Sex: Male
  Weight: 60.9 kg

DRUGS (3)
  1. CARBOPLATIN. [Suspect]
     Active Substance: CARBOPLATIN
     Indication: SPINDLE CELL SARCOMA
     Route: 065
  2. NIVOLUMAB [Suspect]
     Active Substance: NIVOLUMAB
     Indication: SPINDLE CELL SARCOMA
     Route: 065
  3. PACLITAXEL. [Suspect]
     Active Substance: PACLITAXEL
     Indication: SPINDLE CELL SARCOMA
     Route: 065

REACTIONS (3)
  - Malignant neoplasm progression [Unknown]
  - Anaemia [Unknown]
  - Small intestinal perforation [Unknown]
